FAERS Safety Report 7898648-5 (Version None)
Quarter: 2011Q4

REPORT INFORMATION
  Report Type: 
  Country: None (occurrence: None)
  Receive Date: 20111103
  Receipt Date: 20111019
  Transmission Date: 20120403
  Serious: Yes (Hospitalization)
  Sender: FDA-Public Use
  Company Number: 1000025048

PATIENT
  Age: 26 Year
  Sex: Female

DRUGS (4)
  1. ATARAX [Concomitant]
  2. ESCITALOPRAM [Suspect]
     Indication: DEPRESSION
     Dosage: 5 MG (5 MG, 1 IN 1 D), ORAL
     Route: 048
     Dates: start: 20110916
  3. OPAMOX (OXAZEPAM) (OXAZEPAM) [Concomitant]
  4. ESCITALOPRAM [Suspect]
     Indication: DEPRESSION
     Dosage: 10 MG (10 MG, 1 IN 1 D), ORAL
     Route: 048
     Dates: end: 20111010

REACTIONS (6)
  - MUSCULOSKELETAL STIFFNESS [None]
  - FLASHBACK [None]
  - FATIGUE [None]
  - ANXIETY [None]
  - OBSESSIVE THOUGHTS [None]
  - MOVEMENT DISORDER [None]
